FAERS Safety Report 10459732 (Version 1)
Quarter: 2014Q3

REPORT INFORMATION
  Report Type: Spontaneous
  Country: CA (occurrence: CA)
  Receive Date: 20140917
  Receipt Date: 20140917
  Transmission Date: 20150326
  Serious: Yes (Death)
  Sender: FDA-Public Use
  Company Number: CA-GLAXOSMITHKLINE-A1082945A

PATIENT
  Sex: Female

DRUGS (2)
  1. TAFINLAR [Suspect]
     Active Substance: DABRAFENIB MESYLATE
     Indication: METASTATIC MALIGNANT MELANOMA
     Dosage: 300MG PER DAY
     Route: 065
  2. VEMURAFENIB [Concomitant]
     Active Substance: VEMURAFENIB

REACTIONS (6)
  - Vomiting [Unknown]
  - Migraine [Unknown]
  - Constipation [Recovered/Resolved]
  - Headache [Unknown]
  - Death [Fatal]
  - Dizziness [Unknown]
